FAERS Safety Report 5275234-7 (Version None)
Quarter: 2007Q1

REPORT INFORMATION
  Report Type: 
  Country: None (occurrence: None)
  Receive Date: 20061219
  Receipt Date: 20061003
  Transmission Date: 20070707
  Serious: Yes (Hospitalization, Other)
  Sender: FDA-Public Use
  Company Number: US-JNJFOC-20060400693

PATIENT
  Age: 25 Year
  Sex: Female
  Weight: 64.4108 kg

DRUGS (5)
  1. ORTHO EVRA [Suspect]
     Indication: CONTRACEPTION
     Dosage: TRANSDERMAL
     Route: 062
     Dates: start: 20040301, end: 20040410
  2. OXYCONTIN [Concomitant]
  3. ROXICET [Concomitant]
  4. FOLIC ACID [Concomitant]
  5. BENADRYL (DIPHENHYDRAMINE HYDROCHLORIDE) CAPLET [Concomitant]

REACTIONS (1)
  - PULMONARY EMBOLISM [None]
